FAERS Safety Report 7320298-X (Version None)
Quarter: 2011Q1

REPORT INFORMATION
  Report Type: 
  Country: None (occurrence: None)
  Receive Date: 20110228
  Receipt Date: 20110218
  Transmission Date: 20110831
  Serious: Yes (Death, Other)
  Sender: FDA-Public Use
  Company Number: DE-BAXTER-2011BH004081

PATIENT
  Age: 65 Year
  Sex: Female

DRUGS (1)
  1. FEIBA [Suspect]
     Indication: HAEMORRHAGE PROPHYLAXIS
     Route: 065
     Dates: start: 20110101, end: 20110101

REACTIONS (2)
  - MYOCARDIAL INFARCTION [None]
  - DISSEMINATED INTRAVASCULAR COAGULATION [None]
